FAERS Safety Report 13186257 (Version 2)
Quarter: 2017Q1

REPORT INFORMATION
  Report Type: Spontaneous
  Country: US (occurrence: US)
  Receive Date: 20170204
  Receipt Date: 20170320
  Transmission Date: 20170428
  Serious: No
  Sender: FDA-Public Use
  Company Number: US-B.I. PHARMACEUTICALS,INC./RIDGEFIELD-2017-BI-005274

PATIENT
  Age: 89 Year
  Sex: Female

DRUGS (1)
  1. STIOLTO RESPIMAT [Suspect]
     Active Substance: OLODATEROL HYDROCHLORIDE\TIOTROPIUM BROMIDE MONOHYDRATE
     Indication: COUGH
     Dosage: 1 INHALATION ONCE A DAY;  FORM STRENGTH: 2.5 MCG; FORMULATION: INHALATION SPRAY? ADMINISTRATION CORR
     Route: 065

REACTIONS (4)
  - Dizziness [Unknown]
  - Headache [Unknown]
  - Lacrimation increased [Unknown]
  - Photophobia [Unknown]

NARRATIVE: CASE EVENT DATE: 20170120
